FAERS Safety Report 11472402 (Version 1)
Quarter: 2015Q3

REPORT INFORMATION
  Report Type: Spontaneous
  Country: US (occurrence: US)
  Receive Date: 20150908
  Receipt Date: 20150908
  Transmission Date: 20151125
  Serious: No
  Sender: FDA-Public Use
  Company Number: US-ASTRAZENECA-2015SE83373

PATIENT
  Sex: Female

DRUGS (2)
  1. CRESTOR [Suspect]
     Active Substance: ROSUVASTATIN CALCIUM
     Route: 048
  2. CRESTOR [Suspect]
     Active Substance: ROSUVASTATIN CALCIUM
     Dosage: CUTS THE 20S INTO 4, AND ONLY TAKES 5 MG EVERY OTHER DAY
     Route: 048

REACTIONS (3)
  - Abdominal pain upper [Unknown]
  - Tendon discomfort [Unknown]
  - Intentional product misuse [Unknown]
